FAERS Safety Report 10034355 (Version 1)
Quarter: 2014Q1

REPORT INFORMATION
  Report Type: Spontaneous
  Country: US (occurrence: None)
  Receive Date: 20140324
  Receipt Date: 20140324
  Transmission Date: 20141002
  Serious: Yes (Life-Threatening, Hospitalization)
  Sender: FDA-Public Use
  Company Number: None

PATIENT
  Age: 60 Year
  Sex: Male
  Weight: 111.13 kg

DRUGS (1)
  1. ADROGEL [Suspect]
     Indication: BLOOD TESTOSTERONE DECREASED
     Dosage: 3 PUMPS, ONCE DAILY,  APPLIED TO A SURFACE, USUALLY THE SKIN
     Dates: start: 20140131

REACTIONS (1)
  - Pulmonary embolism [None]
